FAERS Safety Report 24956695 (Version 1)
Quarter: 2025Q1

REPORT INFORMATION
  Report Type: Spontaneous
  Country: TR (occurrence: TR)
  Receive Date: 20250211
  Receipt Date: 20250211
  Transmission Date: 20250409
  Serious: Yes (Death)
  Sender: NOVARTIS
  Company Number: TR-002147023-NVSC2025TR023249

PATIENT

DRUGS (1)
  1. ELTROMBOPAG [Suspect]
     Active Substance: ELTROMBOPAG
     Indication: Thrombocytopenia
     Dosage: 50 MG, QD
     Route: 065

REACTIONS (3)
  - Thrombocytopenia [Fatal]
  - Disease recurrence [Fatal]
  - Drug ineffective for unapproved indication [Unknown]
